FAERS Safety Report 26043121 (Version 1)
Quarter: 2025Q4

REPORT INFORMATION
  Report Type: Spontaneous
  Country: US (occurrence: US)
  Receive Date: 20251113
  Receipt Date: 20251113
  Transmission Date: 20260117
  Serious: No
  Sender: TAKEDA
  Company Number: US-TAKEDA-2025TUS101865

PATIENT
  Age: 72 Year
  Sex: Male
  Weight: 104 kg

DRUGS (1)
  1. DEXILANT [Suspect]
     Active Substance: DEXLANSOPRAZOLE
     Indication: Colitis
     Dosage: 60 MILLIGRAM, BID
     Dates: start: 2016

REACTIONS (4)
  - No adverse event [Unknown]
  - Incorrect product administration duration [Unknown]
  - Product use in unapproved indication [Unknown]
  - Extra dose administered [Unknown]
